FAERS Safety Report 19856562 (Version 1)
Quarter: 2021Q3

REPORT INFORMATION
  Report Type: Spontaneous
  Country: US (occurrence: US)
  Receive Date: 20210920
  Receipt Date: 20210920
  Transmission Date: 20211014
  Serious: No
  Sender: FDA-Public Use
  Company Number: US-BRISTOL-MYERS SQUIBB COMPANY-BMS-2021-090430

PATIENT
  Age: 43 Year
  Sex: Female
  Weight: 66.2 kg

DRUGS (1)
  1. ELIQUIS [Suspect]
     Active Substance: APIXABAN
     Indication: JUGULAR VEIN THROMBOSIS
     Dosage: UNK
     Route: 065
     Dates: start: 20210823, end: 20210827

REACTIONS (2)
  - Vomiting [Unknown]
  - Intentional product use issue [Unknown]
